FAERS Safety Report 16461790 (Version 3)
Quarter: 2019Q3

REPORT INFORMATION
  Report Type: Spontaneous
  Country: US (occurrence: US)
  Receive Date: 20190621
  Receipt Date: 20190806
  Transmission Date: 20191004
  Serious: Yes (Other)
  Sender: FDA-Public Use
  Company Number: US-TEVA-2019-US-1063380

PATIENT

DRUGS (23)
  1. VITAMIN E [Concomitant]
     Active Substance: .ALPHA.-TOCOPHEROL
  2. COENZYME Q10 [Concomitant]
     Active Substance: UBIDECARENONE
  3. ACETYLCYST [Concomitant]
  4. MAGNESIUM [Concomitant]
     Active Substance: MAGNESIUM
  5. DHEA [Concomitant]
     Active Substance: PRASTERONE
  6. RIBOFLAVIN [Concomitant]
     Active Substance: RIBOFLAVIN
  7. VITAMIN C [Concomitant]
     Active Substance: ASCORBIC ACID
  8. SELENIUM [Concomitant]
     Active Substance: SELENIUM
  9. FUROSEMIDE. [Concomitant]
     Active Substance: FUROSEMIDE
  10. XALATAN [Concomitant]
     Active Substance: LATANOPROST
  11. COLOSTRUM [Concomitant]
     Active Substance: DIETARY SUPPLEMENT
  12. VITAMIN D3 [Concomitant]
     Active Substance: CHOLECALCIFEROL
  13. HOMOCYSTEINE. [Concomitant]
     Active Substance: HOMOCYSTEINE
  14. ARMOUR THYROID [Concomitant]
     Active Substance: THYROID, PORCINE
  15. LANTANOPROST [Concomitant]
     Active Substance: LATANOPROST
  16. METHOCARBAMOL. [Concomitant]
     Active Substance: METHOCARBAMOL
  17. XARELTO [Concomitant]
     Active Substance: RIVAROXABAN
  18. VITAMIN B12 [Concomitant]
     Active Substance: CYANOCOBALAMIN
  19. PROBIOTIC [Concomitant]
     Active Substance: PROBIOTICS NOS
  20. MELATONIN [Concomitant]
     Active Substance: MELATONIN
  21. SYNRIBO [Suspect]
     Active Substance: OMACETAXINE MEPESUCCINATE
     Indication: CHRONIC MYELOID LEUKAEMIA
     Dosage: DOSAGE: 2.0MG/0.57ML; ONCE TIME A DAY X 14 DAYS
     Dates: start: 20190529
  22. METOPROLOL. [Concomitant]
     Active Substance: METOPROLOL
  23. OMEGA 3 [Concomitant]
     Active Substance: OMEGA-3 FATTY ACIDS

REACTIONS (2)
  - Cardiac failure congestive [Recovering/Resolving]
  - Fatigue [Not Recovered/Not Resolved]

NARRATIVE: CASE EVENT DATE: 20190620
